FAERS Safety Report 7112082-7 (Version None)
Quarter: 2010Q4

REPORT INFORMATION
  Report Type: 
  Country: None (occurrence: None)
  Receive Date: 20101119
  Receipt Date: 20101112
  Transmission Date: 20110411
  Serious: Yes (Other)
  Sender: FDA-Public Use
  Company Number: BR-US-EMD SERONO, INC.-7027932

PATIENT
  Sex: Female

DRUGS (3)
  1. REBIF [Suspect]
     Indication: RELAPSING-REMITTING MULTIPLE SCLEROSIS
     Dates: start: 20100124
  2. CERAZETTE [Concomitant]
  3. OMEPRAZOLE [Concomitant]

REACTIONS (5)
  - DEPRESSION [None]
  - INJECTION SITE HAEMATOMA [None]
  - LABYRINTHITIS [None]
  - PAIN [None]
  - SLOW RESPONSE TO STIMULI [None]
